FAERS Safety Report 24963436 (Version 1)
Quarter: 2025Q1

REPORT INFORMATION
  Report Type: Report from Study
  Country: US (occurrence: US)
  Receive Date: 20250213
  Receipt Date: 20250213
  Transmission Date: 20250408
  Serious: Yes (Other)
  Sender: ABBVIE
  Company Number: US-ABBVIE-6129820

PATIENT
  Age: 60 Year
  Sex: Male

DRUGS (1)
  1. BOTOX [Suspect]
     Active Substance: ONABOTULINUMTOXINA
     Indication: Migraine
     Route: 065

REACTIONS (6)
  - Knee arthroplasty [Unknown]
  - Surgical failure [Unknown]
  - Anxiety [Not Recovered/Not Resolved]
  - Renal cancer [Unknown]
  - Back pain [Unknown]
  - Single functional kidney [Not Recovered/Not Resolved]

NARRATIVE: CASE EVENT DATE: 20200601
